FAERS Safety Report 15778221 (Version 5)
Quarter: 2019Q3

REPORT INFORMATION
  Report Type: Report from Study
  Country: US (occurrence: US)
  Receive Date: 20181231
  Receipt Date: 20190925
  Transmission Date: 20191004
  Serious: Yes (Other)
  Sender: FDA-Public Use
  Company Number: US-ACTELION-A-NJ2018-176544

PATIENT
  Sex: Female

DRUGS (2)
  1. OPSUMIT [Suspect]
     Active Substance: MACITENTAN
     Indication: PULMONARY ARTERIAL HYPERTENSION
     Dosage: 10 MG, QD
     Route: 048
  2. ORENITRAM [Concomitant]
     Active Substance: TREPROSTINIL

REACTIONS (15)
  - Somnolence [Unknown]
  - Anaemia [Unknown]
  - Hypotension [Recovered/Resolved]
  - Fatigue [Unknown]
  - Blood pressure diastolic decreased [Unknown]
  - Haemoglobin decreased [Unknown]
  - Hypersensitivity [Unknown]
  - Blood pressure fluctuation [Unknown]
  - Glomerular filtration rate decreased [Unknown]
  - Angina pectoris [Unknown]
  - Unevaluable event [Unknown]
  - Dehydration [Unknown]
  - Insomnia [Recovered/Resolved]
  - Chronic kidney disease [Unknown]
  - Renal disorder [Unknown]
